FAERS Safety Report 6261810-1 (Version None)
Quarter: 2009Q3

REPORT INFORMATION
  Report Type: 
  Country: None (occurrence: None)
  Receive Date: 20090702
  Receipt Date: 20090305
  Transmission Date: 20100115
  Serious: No
  Sender: FDA-Public Use
  Company Number: 1000005066

PATIENT
  Age: 59 Year
  Sex: Male

DRUGS (8)
  1. BYSTOLIC [Suspect]
     Indication: HYPERTENSION
     Dosage: 10 MG (10 MG, 1 IN 1 D), ORAL
     Route: 048
     Dates: start: 20090223, end: 20090224
  2. AMLODIPINE [Concomitant]
  3. ZETIA [Concomitant]
  4. AVAPRO [Concomitant]
  5. ASPIRIN [Concomitant]
  6. SIMVASTATIN [Concomitant]
  7. PREVACID [Concomitant]
  8. PLAVIX [Concomitant]

REACTIONS (1)
  - TACHYCARDIA [None]
